FAERS Safety Report 12983218 (Version 1)
Quarter: 2016Q4

REPORT INFORMATION
  Report Type: Spontaneous
  Country: US (occurrence: US)
  Receive Date: 20161129
  Receipt Date: 20161129
  Transmission Date: 20170207
  Serious: Yes (Hospitalization, Other)
  Sender: FDA-Public Use
  Company Number: US-ASTRAZENECA-2016SF24638

PATIENT
  Age: 25473 Day
  Sex: Male
  Weight: 63.5 kg

DRUGS (7)
  1. DILANTIN [Suspect]
     Active Substance: PHENYTOIN
     Indication: SEIZURE
     Dosage: UNKNOWN
     Route: 048
  2. OMEPRAZOLE. [Suspect]
     Active Substance: OMEPRAZOLE
     Indication: GASTROOESOPHAGEAL REFLUX DISEASE
     Route: 048
  3. DILANTIN [Suspect]
     Active Substance: PHENYTOIN
     Indication: SEIZURE
     Route: 048
  4. ASPIRIN. [Concomitant]
     Active Substance: ASPIRIN
     Indication: ANTICOAGULANT THERAPY
     Dates: start: 2007
  5. TAMSULOSIN [Concomitant]
     Active Substance: TAMSULOSIN
     Indication: PROSTATOMEGALY
     Route: 048
  6. GABAPENTIN. [Concomitant]
     Active Substance: GABAPENTIN
     Indication: NEUROPATHY PERIPHERAL
     Route: 048
  7. FINASTERIDE. [Concomitant]
     Active Substance: FINASTERIDE
     Indication: PROSTATOMEGALY
     Route: 048

REACTIONS (16)
  - Tremor [Recovered/Resolved]
  - Rash [Recovered/Resolved]
  - Memory impairment [Recovering/Resolving]
  - Dyskinesia [Recovered/Resolved]
  - Weight decreased [Unknown]
  - Skin cancer [Unknown]
  - Constipation [Unknown]
  - Drug level increased [Recovered/Resolved]
  - Rib fracture [Recovering/Resolving]
  - Dyspnoea [Recovered/Resolved]
  - Dysarthria [Recovered/Resolved]
  - Swelling face [Recovered/Resolved]
  - Head injury [Unknown]
  - Fall [Unknown]
  - Visual impairment [Recovering/Resolving]
  - Yellow skin [Recovered/Resolved]

NARRATIVE: CASE EVENT DATE: 20161027
